FAERS Safety Report 9305396 (Version 2)
Quarter: 2013Q2

REPORT INFORMATION
  Report Type: Report from Study
  Country: US (occurrence: US)
  Receive Date: 20130523
  Receipt Date: 20130621
  Transmission Date: 20140414
  Serious: Yes (Hospitalization)
  Sender: FDA-Public Use
  Company Number: PHEH2013US007950

PATIENT
  Sex: Female

DRUGS (1)
  1. GILENYA [Suspect]
     Indication: MULTIPLE SCLEROSIS
     Dosage: 0.5 MG, QD
     Route: 048
     Dates: start: 20130326

REACTIONS (4)
  - Multiple sclerosis relapse [Unknown]
  - Gait disturbance [Recovering/Resolving]
  - Paralysis [Unknown]
  - Feeling abnormal [Recovering/Resolving]
